FAERS Safety Report 8598224-5 (Version None)
Quarter: 2012Q3

REPORT INFORMATION
  Report Type: 
  Country: None (occurrence: None)
  Receive Date: 20120816
  Receipt Date: 20120806
  Transmission Date: 20120928
  Serious: Yes (Other)
  Sender: FDA-Public Use
  Company Number: US-ELI_LILLY_AND_COMPANY-US201208001841

PATIENT
  Age: 67 Year
  Sex: Female

DRUGS (1)
  1. CYMBALTA [Suspect]
     Indication: FIBROMYALGIA
     Dosage: 60 MG, QD
     Dates: start: 20101101

REACTIONS (18)
  - HYPERHIDROSIS [None]
  - TREMOR [None]
  - DERMATITIS BULLOUS [None]
  - PRURITUS [None]
  - DYSURIA [None]
  - IMPAIRED HEALING [None]
  - DRUG INEFFECTIVE [None]
  - HEADACHE [None]
  - FEELING ABNORMAL [None]
  - FATIGUE [None]
  - MUSCLE TWITCHING [None]
  - EXFOLIATIVE RASH [None]
  - PURPURA [None]
  - DRY MOUTH [None]
  - SOMNOLENCE [None]
  - DIZZINESS [None]
  - RASH [None]
  - MUSCLE SPASMS [None]
